FAERS Safety Report 15806937 (Version 1)
Quarter: 2019Q1

REPORT INFORMATION
  Report Type: Spontaneous
  Country: US (occurrence: US)
  Receive Date: 20190103
  Receipt Date: 20190103
  Transmission Date: 20190417
  Serious: No
  Sender: FDA-Public Use
  Company Number: None

PATIENT

DRUGS (1)
  1. METFORMIN HCL METFORMIN [Suspect]
     Active Substance: METFORMIN HYDROCHLORIDE

REACTIONS (5)
  - Renal impairment [None]
  - Lactic acidosis [None]
  - Contraindicated product prescribed [None]
  - Contraindicated product administered [None]
  - Dialysis [None]
